FAERS Safety Report 21774590 (Version 1)
Quarter: 2022Q4

REPORT INFORMATION
  Report Type: Spontaneous
  Country: US (occurrence: US)
  Receive Date: 20221224
  Receipt Date: 20221224
  Transmission Date: 20230113
  Serious: No
  Sender: FDA-Public Use
  Company Number: US-SA-SAC20221221000861

PATIENT
  Sex: Female

DRUGS (4)
  1. DUPIXENT [Suspect]
     Active Substance: DUPILUMAB
     Indication: Eosinophilic oesophagitis
     Dosage: 300 MG, QW
     Route: 058
     Dates: start: 20220818, end: 2022
  2. PANTOPRAZOLE [Concomitant]
     Active Substance: PANTOPRAZOLE
  3. UBRELVY [Concomitant]
     Active Substance: UBROGEPANT
  4. NORTRIPTYLINE [Concomitant]
     Active Substance: NORTRIPTYLINE

REACTIONS (1)
  - Illness [Recovered/Resolved]
